FAERS Safety Report 6836460-6 (Version None)
Quarter: 2010Q3

REPORT INFORMATION
  Report Type: 
  Country: None (occurrence: None)
  Receive Date: 20100713
  Receipt Date: 20100705
  Transmission Date: 20110219
  Serious: Yes (Congenital Anomaly)
  Sender: FDA-Public Use
  Company Number: FR-BRISTOL-MYERS SQUIBB COMPANY-14544530

PATIENT
  Sex: Female
  Weight: 3 kg

DRUGS (3)
  1. QUESTRAN [Suspect]
     Dosage: QUESTRAN POWDER 4 G HALF A SACHET A DAY ORALLY BY MOTHER
     Route: 064
  2. IMUREL [Suspect]
     Dosage: 125 MILLIGRAM/D THEN 50 MG/D IN THE THIRD TRIMESTER
     Route: 064
  3. VITAMIN B-12 [Concomitant]
     Dosage: 1000/GAMMA/MONTH.

REACTIONS (1)
  - DIASTEMATOMYELIA [None]
